FAERS Safety Report 16276568 (Version 3)
Quarter: 2019Q3

REPORT INFORMATION
  Report Type: Report from Study
  Country: ES (occurrence: ES)
  Receive Date: 20190506
  Receipt Date: 20190725
  Transmission Date: 20191004
  Serious: Yes (Hospitalization)
  Sender: FDA-Public Use
  Company Number: ES-EISAI MEDICAL RESEARCH-EC-2018-043227

PATIENT
  Age: 68 Year
  Sex: Male
  Weight: 59.5 kg

DRUGS (13)
  1. ONDANSETRON [Concomitant]
     Active Substance: ONDANSETRON
  2. LENVATINIB [Suspect]
     Active Substance: LENVATINIB
     Indication: RENAL CELL CARCINOMA
     Route: 048
     Dates: start: 20180518
  3. BUPRENORPHINE. [Suspect]
     Active Substance: BUPRENORPHINE
     Indication: ARTHRALGIA
  4. EVEROLIMUS. [Suspect]
     Active Substance: EVEROLIMUS
     Indication: RENAL CELL CARCINOMA
     Route: 048
     Dates: start: 20180518
  5. HALOPERIDOL. [Concomitant]
     Active Substance: HALOPERIDOL
  6. BUPRENORPHINE. [Suspect]
     Active Substance: BUPRENORPHINE
     Indication: NECK PAIN
     Route: 062
     Dates: start: 20180523
  7. LORAZEPAM. [Concomitant]
     Active Substance: LORAZEPAM
  8. IBUPROFEN. [Concomitant]
     Active Substance: IBUPROFEN
  9. BUPRENORPHINE. [Concomitant]
     Active Substance: BUPRENORPHINE
  10. MORPHINE [Suspect]
     Active Substance: MORPHINE
     Indication: NECK PAIN
     Route: 058
     Dates: start: 20180727
  11. MORPHINE [Suspect]
     Active Substance: MORPHINE
     Indication: ARTHRALGIA
  12. OMEPRAZOLE. [Concomitant]
     Active Substance: OMEPRAZOLE
  13. PARACETAMOL [Concomitant]
     Active Substance: ACETAMINOPHEN

REACTIONS (4)
  - Pneumonia necrotising [Recovering/Resolving]
  - Toxicity to various agents [Recovered/Resolved]
  - Pyrexia [Recovered/Resolved]
  - Inadequate analgesia [Recovered/Resolved]

NARRATIVE: CASE EVENT DATE: 20180711
